FAERS Safety Report 4314680-2 (Version None)
Quarter: 2004Q1

REPORT INFORMATION
  Report Type: 
  Country: None (occurrence: None)
  Receive Date: 20040308
  Receipt Date: 20040226
  Transmission Date: 20041129
  Serious: Yes (Life-Threatening, Hospitalization)
  Sender: FDA-Public Use
  Company Number: ES-JNJFOC-20031202154

PATIENT
  Age: 75 Year
  Sex: Male

DRUGS (3)
  1. ADOLONTA (TRAMADOL HYDROCHLORIDE) INJECTION [Suspect]
     Dosage: 50 MG, INTRAVENOUS
     Route: 042
     Dates: start: 20031007, end: 20031007
  2. ENOXAPRINE (HEPARIN-FRACTION, SODIUM SALT) [Concomitant]
  3. OMEPRAZOLE [Concomitant]

REACTIONS (1)
  - RESPIRATORY ARREST [None]
